FAERS Safety Report 25996454 (Version 1)
Quarter: 2025Q4

REPORT INFORMATION
  Report Type: Report from Study
  Country: US (occurrence: US)
  Receive Date: 20251104
  Receipt Date: 20251104
  Transmission Date: 20260118
  Serious: No
  Sender: AIMMUNE
  Company Number: US-AIMMUNE THERAPEUTICS, INC.-2025AIMT00831

PATIENT

DRUGS (14)
  1. VOWST [Suspect]
     Active Substance: DONOR HUMAN STOOL SPORES (ETHANOL TREATED)
     Indication: Clostridium difficile infection
     Dosage: 4 CAPSULES, 1X/DAY
     Route: 048
     Dates: start: 20250901, end: 20250903
  2. VOWST [Suspect]
     Active Substance: DONOR HUMAN STOOL SPORES (ETHANOL TREATED)
     Indication: Intestinal ischaemia
     Dosage: 4 CAPSULES, ONCE, LAST DOSE PRIOR TO EVENTS
     Route: 048
     Dates: start: 20250901, end: 20250901
  3. ASPIRIN [Concomitant]
     Active Substance: ASPIRIN
     Indication: Product used for unknown indication
     Dosage: 81 MG
  4. FUROSEMIDE [Concomitant]
     Active Substance: FUROSEMIDE
     Indication: Product used for unknown indication
     Dosage: 20 MG
  5. ATORVASTATIN [Concomitant]
     Active Substance: ATORVASTATIN
     Indication: Product used for unknown indication
     Dosage: 80 MG
  6. LISINOPRIL [Concomitant]
     Active Substance: LISINOPRIL
     Indication: Product used for unknown indication
     Dosage: 5 MG
  7. FOLIC ACID [Concomitant]
     Active Substance: FOLIC ACID
     Indication: Product used for unknown indication
     Dosage: 1 MG
  8. CARVEDILOL [Concomitant]
     Active Substance: CARVEDILOL
     Indication: Product used for unknown indication
     Dosage: 12.5 MG
  9. LEVETIRACETAM [Concomitant]
     Active Substance: LEVETIRACETAM
     Indication: Product used for unknown indication
     Dosage: 500 MG
  10. LAMOTRIGINE [Concomitant]
     Active Substance: LAMOTRIGINE
     Indication: Product used for unknown indication
     Dosage: 100 MG IN AM, 150 MG IN PM
  11. FENOFIBRATE [Concomitant]
     Active Substance: FENOFIBRATE
     Indication: Product used for unknown indication
     Dosage: 160 MG
  12. MELATONIN [Concomitant]
     Active Substance: MELATONIN
     Indication: Product used for unknown indication
     Dosage: 5 MG
  13. ROPINIROLE [Concomitant]
     Active Substance: ROPINIROLE
     Indication: Product used for unknown indication
     Dosage: 0.5 MG
  14. SERTRALINE [Concomitant]
     Active Substance: SERTRALINE HYDROCHLORIDE
     Indication: Product used for unknown indication
     Dosage: 25 MG

REACTIONS (5)
  - Insomnia [Unknown]
  - Vomiting [Not Recovered/Not Resolved]
  - Nasopharyngitis [Not Recovered/Not Resolved]
  - Retching [Not Recovered/Not Resolved]
  - Increased upper airway secretion [Not Recovered/Not Resolved]

NARRATIVE: CASE EVENT DATE: 20250901
